FAERS Safety Report 9313689 (Version 1)
Quarter: 2013Q2

REPORT INFORMATION
  Report Type: Spontaneous
  Country: MX (occurrence: MX)
  Receive Date: 20130529
  Receipt Date: 20130529
  Transmission Date: 20140414
  Serious: Yes (Death)
  Sender: FDA-Public Use
  Company Number: MX-BRISTOL-MYERS SQUIBB COMPANY-18953265

PATIENT
  Age: 66 Year
  Sex: Female
  Weight: 65 kg

DRUGS (3)
  1. COAPROVEL TABS 150MG/12.5MG [Suspect]
     Indication: HYPERTENSION
     Dosage: 1DF:1 TAB
     Route: 048
     Dates: start: 2008, end: 20130506
  2. AMLODIPINE [Concomitant]
     Indication: HYPERTENSION
     Dosage: 1DF:1 TAB
     Route: 048
     Dates: start: 2008, end: 20130506
  3. INSULIN [Concomitant]
     Indication: TYPE 2 DIABETES MELLITUS
     Dosage: 1DF:8IU OR 4 IU
     Route: 048
     Dates: end: 20130506

REACTIONS (1)
  - Renal failure [Fatal]
